FAERS Safety Report 6300814-7 (Version None)
Quarter: 2009Q3

REPORT INFORMATION
  Report Type: 
  Country: None (occurrence: None)
  Receive Date: 20090807
  Receipt Date: 20090727
  Transmission Date: 20100115
  Serious: Yes (Other)
  Sender: FDA-Public Use
  Company Number: BR-PFIZER INC-2009246358

PATIENT
  Age: 47 Year

DRUGS (4)
  1. LIPITOR [Suspect]
     Indication: BLOOD CHOLESTEROL INCREASED
     Dosage: 20 MG, 1X/DAY
     Route: 048
     Dates: start: 20071101
  2. LIPITOR [Suspect]
     Indication: BLOOD TRIGLYCERIDES INCREASED
  3. PROPRANOLOL [Concomitant]
     Indication: MITRAL VALVE DISEASE
     Dosage: UNK
  4. VITAMIN B COMPLEX CAP [Concomitant]
     Indication: MUSCLE SPASMS
     Dosage: UNK

REACTIONS (8)
  - BLOOD TRIGLYCERIDES INCREASED [None]
  - DIZZINESS [None]
  - HYPOAESTHESIA [None]
  - MUSCLE SPASMS [None]
  - NECK PAIN [None]
  - PAIN IN EXTREMITY [None]
  - TACHYCARDIA [None]
  - WEIGHT DECREASED [None]
